FAERS Safety Report 24958386 (Version 1)
Quarter: 2025Q1

REPORT INFORMATION
  Report Type: Spontaneous
  Country: RO (occurrence: RO)
  Receive Date: 20250212
  Receipt Date: 20250212
  Transmission Date: 20250409
  Serious: Yes (Hospitalization)
  Sender: RANBAXY
  Company Number: RO-SUN PHARMACEUTICAL INDUSTRIES LTD-2025RR-493658

PATIENT
  Age: 25 Year
  Sex: Male

DRUGS (1)
  1. BUPROPION [Suspect]
     Active Substance: BUPROPION
     Indication: Depression
     Route: 065

REACTIONS (5)
  - Substance abuse [Unknown]
  - Suicide attempt [Unknown]
  - Poisoning [Unknown]
  - Hepatic cytolysis [Unknown]
  - Rhabdomyolysis [Unknown]
